FAERS Safety Report 4909023-7 (Version None)
Quarter: 2006Q1

REPORT INFORMATION
  Report Type: 
  Country: None (occurrence: None)
  Receive Date: 20060209
  Receipt Date: 20060209
  Transmission Date: 20060701
  Serious: Yes (Other)
  Sender: FDA-Public Use
  Company Number: None

PATIENT
  Age: 36 Year
  Sex: Male
  Weight: 87.0906 kg

DRUGS (2)
  1. CYMBALTA [Suspect]
     Indication: DEPRESSION
     Dosage: 60 MG QHS PO
     Route: 048
     Dates: start: 20040129, end: 20060201
  2. CYMBALTA [Suspect]
     Indication: NEURALGIA
     Dosage: 60 MG QHS PO
     Route: 048
     Dates: start: 20040129, end: 20060201

REACTIONS (6)
  - AFFECT LABILITY [None]
  - DISTURBANCE IN ATTENTION [None]
  - DRUG WITHDRAWAL SYNDROME [None]
  - MEDICATION ERROR [None]
  - TACHYCARDIA [None]
  - WEIGHT INCREASED [None]
